FAERS Safety Report 7656613-7 (Version None)
Quarter: 2011Q3

REPORT INFORMATION
  Report Type: 
  Country: None (occurrence: None)
  Receive Date: 20110804
  Receipt Date: 20110801
  Transmission Date: 20111222
  Serious: Yes (Other)
  Sender: FDA-Public Use
  Company Number: US-PFIZER INC-2011174904

PATIENT
  Sex: Male
  Weight: 82.993 kg

DRUGS (2)
  1. SUTENT [Suspect]
     Dosage: 12.5 MG, 3X/DAY
     Route: 048
  2. CREON [Concomitant]
     Dosage: 5
     Route: 048

REACTIONS (4)
  - PALMAR-PLANTAR ERYTHRODYSAESTHESIA SYNDROME [None]
  - GLOSSODYNIA [None]
  - HAIR COLOUR CHANGES [None]
  - DIARRHOEA [None]
